FAERS Safety Report 16010910 (Version 1)
Quarter: 2019Q1

REPORT INFORMATION
  Report Type: Spontaneous
  Country: CN (occurrence: CN)
  Receive Date: 20190227
  Receipt Date: 20190227
  Transmission Date: 20190418
  Serious: Yes (Hospitalization, Other)
  Sender: FDA-Public Use
  Company Number: CN-LUPIN PHARMACEUTICALS INC.-2019-01090

PATIENT
  Age: 62 Year
  Sex: Female

DRUGS (1)
  1. VALSARTAN TABLETS [Suspect]
     Active Substance: VALSARTAN
     Indication: HYPERTENSION
     Dosage: 40 MILLIGRAM, QD
     Route: 065

REACTIONS (4)
  - Renal failure [Recovered/Resolved]
  - Tubulointerstitial nephritis [Recovered/Resolved]
  - Hypersensitivity [Recovered/Resolved]
  - Anaemia [Unknown]
